FAERS Safety Report 9523437 (Version 1)
Quarter: 2013Q1

REPORT INFORMATION
  Report Type: Spontaneous
  Country: US (occurrence: None)
  Receive Date: 20130305
  Receipt Date: 20130305
  Transmission Date: 20140127
  Serious: Yes (Hospitalization, Other)
  Sender: FDA-Public Use
  Company Number: 163-21880-12012668

PATIENT
  Age: 65 Year
  Sex: Male

DRUGS (3)
  1. REVLIMID ( LENALIDOMIDE) ( 25 MILLIGRAM, CAPSULES) [Suspect]
     Indication: PLASMA CELL MYELOMA
     Dosage: 25 MG, DAILY X 3WKS, 1 WK OFF, PO
     Route: 048
     Dates: start: 20081031
  2. COUMADIN ( WARFARIN SODIUM) ( UNKNOWN) [Concomitant]
  3. DEXAMETHASONE ( DEXAMETHASONE) (TABLETS) [Concomitant]

REACTIONS (3)
  - Cardiac failure congestive [None]
  - Pulmonary embolism [None]
  - Deep vein thrombosis [None]
